FAERS Safety Report 9064726 (Version 1)
Quarter: 2013Q1

REPORT INFORMATION
  Report Type: Spontaneous
  Country: FI (occurrence: FI)
  Receive Date: 20130130
  Receipt Date: 20130130
  Transmission Date: 20140127
  Serious: Yes (Other)
  Sender: FDA-Public Use
  Company Number: FI-RB-014237-09

PATIENT
  Sex: Female

DRUGS (9)
  1. SUBUTEX [Suspect]
     Indication: DRUG DEPENDENCE
     Route: 065
     Dates: start: 200109, end: 2004
  2. SUBUTEX [Suspect]
     Route: 065
     Dates: start: 200611, end: 2007
  3. SUBOXONE [Suspect]
     Route: 065
     Dates: start: 2004
  4. SUBOXONE [Suspect]
     Indication: DRUG DEPENDENCE
     Route: 065
     Dates: start: 2008
  5. METHADONE [Suspect]
     Indication: DRUG DEPENDENCE
     Route: 065
     Dates: start: 20070525, end: 20070615
  6. METHADONE [Suspect]
     Dosage: DOSING INFORMATION IS UNKNOWN
     Route: 065
     Dates: start: 20080131
  7. METHADONE [Suspect]
     Route: 065
     Dates: start: 20080318
  8. SIRDALUD [Concomitant]
     Indication: PRODUCT USED FOR UNKNOWN INDICATION
     Dosage: DOSING INFORMATION IS UNKNOWN
     Route: 065
  9. SERONIL [Concomitant]
     Indication: PRODUCT USED FOR UNKNOWN INDICATION
     Dosage: DOSING INFORMATION IS UNKNOWN
     Route: 065

REACTIONS (4)
  - Drug withdrawal syndrome [Unknown]
  - Substance abuse [Unknown]
  - Exposure during pregnancy [Recovered/Resolved]
  - Premature delivery [Recovered/Resolved]
